FAERS Safety Report 24170197 (Version 1)
Quarter: 2024Q3

REPORT INFORMATION
  Report Type: Spontaneous
  Country: JP (occurrence: JP)
  Receive Date: 20240803
  Receipt Date: 20240803
  Transmission Date: 20241017
  Serious: Yes (Other)
  Sender: ABBVIE
  Company Number: JP-ABBVIE-5863133

PATIENT
  Sex: Male

DRUGS (5)
  1. ALPHAGAN P [Suspect]
     Active Substance: BRIMONIDINE TARTRATE
     Indication: Glaucoma
     Dosage: OPHTHALMIC SOLUTION 0.1%
     Route: 047
     Dates: end: 20170810
  2. ALPHAGAN P [Suspect]
     Active Substance: BRIMONIDINE TARTRATE
     Dosage: OPHTHALMIC SOLUTION 0.1%
     Route: 047
  3. TRAVATAN Z [Concomitant]
     Active Substance: TRAVOPROST
     Indication: Glaucoma
     Dosage: OPHTHALMIC SOLUTION 0.004%
     Route: 047
  4. BRINZOLAMIDE\TIMOLOL MALEATE [Concomitant]
     Active Substance: BRINZOLAMIDE\TIMOLOL MALEATE
     Indication: Glaucoma
     Dosage: COMBINATION OPHTHALMIC SUSPENSION (BRINZOLAMIDE/TIMOLOL MALEATE)
     Route: 047
  5. HYALURONATE SODIUM [Suspect]
     Active Substance: HYALURONATE SODIUM
     Indication: Product used for unknown indication
     Dosage: OPHTHALMIC SOLUTION 0.1%?1 GTT, LEFT EYE, AS-NEEDED
     Route: 047
     Dates: end: 20150106

REACTIONS (2)
  - Iritis [Recovered/Resolved]
  - Corneal opacity [Unknown]
